FAERS Safety Report 10296529 (Version 1)
Quarter: 2014Q3

REPORT INFORMATION
  Report Type: Spontaneous
  Country: DE (occurrence: DE)
  Receive Date: 20140710
  Receipt Date: 20140710
  Transmission Date: 20150326
  Serious: Yes (Other)
  Sender: FDA-Public Use
  Company Number: DE-PFIZER INC-2014191085

PATIENT
  Age: 30 Year
  Sex: Female

DRUGS (2)
  1. FOLIO FORTE [Concomitant]
     Active Substance: FOLIC ACID\VITAMINS
     Dosage: UNK
     Dates: start: 20121006, end: 20130717
  2. PANTOPRAZOLE [Suspect]
     Active Substance: PANTOPRAZOLE SODIUM
     Indication: GASTRITIS
     Dosage: 40 MG, ALTERNATE DAY (QOD)
     Dates: start: 20121006, end: 20130717

REACTIONS (2)
  - Oligohydramnios [Unknown]
  - Placental insufficiency [Unknown]
